FAERS Safety Report 25446098 (Version 1)
Quarter: 2025Q2

REPORT INFORMATION
  Report Type: Spontaneous
  Country: US (occurrence: None)
  Receive Date: 20250617
  Receipt Date: 20250617
  Transmission Date: 20250717
  Serious: Yes (Other)
  Sender: FDA-CTU
  Company Number: None

PATIENT
  Age: 55 Year
  Sex: Male

DRUGS (2)
  1. NILOTINIB [Suspect]
     Active Substance: NILOTINIB
     Indication: Chronic myeloid leukaemia
     Dosage: 300MG BID?
  2. ENALAPRIL [Suspect]
     Active Substance: ENALAPRIL

REACTIONS (5)
  - Blood pressure inadequately controlled [None]
  - Lung disorder [None]
  - Pulmonary mass [None]
  - Lung opacity [None]
  - Pneumonia fungal [None]
